FAERS Safety Report 15575157 (Version 1)
Quarter: 2018Q4

REPORT INFORMATION
  Report Type: Spontaneous
  Country: FR (occurrence: FR)
  Receive Date: 20181101
  Receipt Date: 20181101
  Transmission Date: 20190205
  Serious: Yes (Hospitalization, Other)
  Sender: FDA-Public Use
  Company Number: FR-JNJFOC-20181045907

PATIENT
  Age: 19 Year
  Sex: Female

DRUGS (1)
  1. IXPRIM [Suspect]
     Active Substance: ACETAMINOPHEN\TRAMADOL HYDROCHLORIDE
     Indication: WRIST FRACTURE
     Route: 048
     Dates: start: 20180813

REACTIONS (7)
  - Loss of consciousness [Recovered/Resolved]
  - Hallucination, visual [Recovered/Resolved]
  - Incorrect dose administered [Unknown]
  - Nausea [Recovered/Resolved]
  - Malaise [Recovered/Resolved]
  - Vertigo [Recovered/Resolved]
  - Medication error [Unknown]

NARRATIVE: CASE EVENT DATE: 20180813
